FAERS Safety Report 23714817 (Version 1)
Quarter: 2024Q2

REPORT INFORMATION
  Report Type: Spontaneous
  Country: CN (occurrence: CN)
  Receive Date: 20240406
  Receipt Date: 20240406
  Transmission Date: 20240716
  Serious: Yes (Other)
  Sender: FDA-Public Use
  Company Number: CN-JNJFOC-20240385287

PATIENT
  Age: 38 Year
  Sex: Male
  Weight: 77 kg

DRUGS (6)
  1. RISPERDAL [Suspect]
     Active Substance: RISPERIDONE
     Indication: Psychiatric symptom
     Route: 048
     Dates: start: 20240229, end: 20240304
  2. RISPERDAL [Suspect]
     Active Substance: RISPERIDONE
     Dosage: 2ML QD AND 4ML QN
     Route: 048
     Dates: start: 20240304, end: 20240327
  3. LITHIUM CARBONATE [Suspect]
     Active Substance: LITHIUM CARBONATE
     Indication: Drug therapy
     Route: 048
     Dates: start: 20240229, end: 20240301
  4. LITHIUM CARBONATE [Suspect]
     Active Substance: LITHIUM CARBONATE
     Route: 048
     Dates: start: 20240301, end: 20240327
  5. ARIPIPRAZOLE [Suspect]
     Active Substance: ARIPIPRAZOLE
     Indication: Psychiatric symptom
     Route: 048
     Dates: start: 20240322, end: 20240325
  6. ARIPIPRAZOLE [Suspect]
     Active Substance: ARIPIPRAZOLE
     Route: 048
     Dates: start: 20240325, end: 20240327

REACTIONS (1)
  - Hyperuricaemia [Unknown]

NARRATIVE: CASE EVENT DATE: 20240326
